FAERS Safety Report 10045331 (Version 1)
Quarter: 2014Q1

REPORT INFORMATION
  Report Type: Spontaneous
  Country: GB (occurrence: GB)
  Receive Date: 20140328
  Receipt Date: 20140328
  Transmission Date: 20141002
  Serious: Yes (Other)
  Sender: FDA-Public Use
  Company Number: GB-ACTAVISPR-2014-05697

PATIENT
  Age: 71 Year
  Sex: Male

DRUGS (1)
  1. CO-CODAMOL [Suspect]
     Indication: PRODUCT USED FOR UNKNOWN INDICATION
     Dosage: 500 MG, UNK
     Route: 065
     Dates: start: 20140311

REACTIONS (2)
  - Hallucination [Recovered/Resolved]
  - Abnormal behaviour [Unknown]
